FAERS Safety Report 5853112-X (Version None)
Quarter: 2008Q3

REPORT INFORMATION
  Report Type: 
  Country: None (occurrence: None)
  Receive Date: 20080821
  Receipt Date: 20080814
  Transmission Date: 20090109
  Serious: Yes (Other)
  Sender: FDA-Public Use
  Company Number: US-GILEAD-2008-0017802

PATIENT
  Age: 31 Year
  Sex: Female

DRUGS (4)
  1. TRUVADA [Suspect]
     Indication: HIV INFECTION
     Route: 048
     Dates: start: 20060630
  2. NORVIR [Suspect]
     Route: 048
     Dates: start: 20071113
  3. REYATAZ [Suspect]
     Route: 048
     Dates: start: 20060630, end: 20071113
  4. REYATAZ [Suspect]
     Route: 048
     Dates: start: 20071113

REACTIONS (1)
  - ABORTION SPONTANEOUS [None]
